FAERS Safety Report 8486831-X (Version None)
Quarter: 2012Q3

REPORT INFORMATION
  Report Type: 
  Country: None (occurrence: None)
  Receive Date: 20120704
  Receipt Date: 20120627
  Transmission Date: 20120928
  Serious: Yes (Other)
  Sender: FDA-Public Use
  Company Number: US-SP-2012-06415

PATIENT
  Sex: Female

DRUGS (2)
  1. TUBERSOL [Suspect]
     Indication: TUBERCULIN TEST
     Route: 023
     Dates: start: 20120620, end: 20120620
  2. APLISOL [Suspect]
     Indication: TUBERCULIN TEST
     Route: 023

REACTIONS (3)
  - LOCAL REACTION [None]
  - ERYTHEMA MULTIFORME [None]
  - GAIT DISTURBANCE [None]
